FAERS Safety Report 7291807-4 (Version None)
Quarter: 2011Q1

REPORT INFORMATION
  Report Type: 
  Country: None (occurrence: None)
  Receive Date: 20110214
  Receipt Date: 20110131
  Transmission Date: 20110831
  Serious: Yes (Hospitalization, Other)
  Sender: FDA-Public Use
  Company Number: CN-ACTELION-A-US2011-44631

PATIENT

DRUGS (3)
  1. OXYGEN [Concomitant]
  2. VENTAVIS [Suspect]
     Indication: PULMONARY ARTERIAL HYPERTENSION
     Dosage: 10 UG, Q4HRS
     Route: 055
  3. ALPROSTADIL [Concomitant]

REACTIONS (6)
  - CAESAREAN SECTION [None]
  - PREGNANCY [None]
  - CONDITION AGGRAVATED [None]
  - STILLBIRTH [None]
  - CARDIAC FAILURE [None]
  - HAEMOPTYSIS [None]
